FAERS Safety Report 6545794-4 (Version None)
Quarter: 2010Q1

REPORT INFORMATION
  Report Type: 
  Country: None (occurrence: None)
  Receive Date: 20100114
  Receipt Date: 20090602
  Transmission Date: 20100710
  Serious: No
  Sender: FDA-Public Use
  Company Number: 2009BM000123

PATIENT
  Age: 38 Year
  Sex: Female
  Weight: 56 kg

DRUGS (7)
  1. KUVAN [Suspect]
     Indication: PHENYLKETONURIA
     Dosage: 1100 MG;QD;PO
     Route: 048
     Dates: start: 20090320, end: 20090602
  2. KUVAN [Suspect]
     Dosage: 900 MG;QD;PO : 1100 MG;QD;PO
     Route: 048
     Dates: start: 20090603, end: 20090101
  3. KUVAN [Suspect]
     Dosage: 900 MG;QD;PO : 1100 MG;QD;PO
     Route: 048
     Dates: start: 20090719
  4. XANAX [Concomitant]
  5. PREVACID [Concomitant]
  6. NUTRIENTS WITHOUT PHENYLALANINE [Concomitant]
  7. CYMBALTA [Concomitant]

REACTIONS (3)
  - CHILLS [None]
  - HOT FLUSH [None]
  - NIGHT SWEATS [None]
